FAERS Safety Report 11314172 (Version 1)
Quarter: 2015Q3

REPORT INFORMATION
  Report Type: Spontaneous
  Country: US (occurrence: US)
  Receive Date: 20150727
  Receipt Date: 20150727
  Transmission Date: 20151125
  Serious: No
  Sender: FDA-Public Use
  Company Number: US-009507513-1507USA011449

PATIENT
  Age: 54 Year
  Sex: Female

DRUGS (26)
  1. FLEXERIL [Concomitant]
     Active Substance: CYCLOBENZAPRINE HYDROCHLORIDE
     Dosage: 10 MG, Q8H
     Route: 048
  2. MOBIC [Concomitant]
     Active Substance: MELOXICAM
     Dosage: 1 DF, QD
     Route: 048
  3. CALCIUM CITRATE (+) VITAMIN D (UNSPECIFIED) [Concomitant]
     Dosage: 1 DF, QAM
  4. LACTULOSE. [Concomitant]
     Active Substance: LACTULOSE
     Dosage: 1 TABLET SPOON MORNING
  5. LYRICA [Concomitant]
     Active Substance: PREGABALIN
     Dosage: 1 DF, BID
  6. PROVENTIL [Suspect]
     Active Substance: ALBUTEROL
     Dosage: DAILY AS NEEDED
  7. SEREVENT DISK [Concomitant]
     Dosage: 1 PUFF 2* DAILY MORNING AND NIGHT
  8. ZYRTEC [Concomitant]
     Active Substance: CETIRIZINE HYDROCHLORIDE
     Dosage: 1X DAILY EVENING
  9. CENTRUM SILVER [Concomitant]
     Active Substance: VITAMINS
     Dosage: 1 DF, QAM
  10. MILK THISTLE [Concomitant]
     Active Substance: MILK THISTLE
     Dosage: 1 X DAILY MORNING
  11. TETANUS TOXOID [Concomitant]
     Active Substance: CLOSTRIDIUM TETANI TOXOID ANTIGEN (FORMALDEHYDE INACTIVATED)
     Dates: start: 20120528, end: 20120528
  12. VICODIN [Concomitant]
     Active Substance: ACETAMINOPHEN\HYDROCODONE BITARTRATE
     Dosage: 1 OR 2 TABLETS EVERY 6 HOUR AS NEEDED
     Route: 048
  13. ZINC (UNSPECIFIED) [Concomitant]
     Dosage: 1 X DAILY MORNING
  14. SINGULAIR [Suspect]
     Active Substance: MONTELUKAST SODIUM
     Dosage: 1 X DAILY EVENING
     Route: 048
  15. NOW BLACK CHERRY FRUIT EXTRACT [Concomitant]
     Dosage: 1X DAILY MORNING
  16. NORCO [Concomitant]
     Active Substance: ACETAMINOPHEN\HYDROCODONE BITARTRATE
     Dosage: 1 OR 2 TABLETS EVERY 4 HOURS AS NEEDED
     Route: 048
  17. FIORICET [Concomitant]
     Active Substance: ACETAMINOPHEN\BUTALBITAL\CAFFEINE
     Indication: HEADACHE
     Dosage: 1 OR 2 TABLETS AS NEEDED
     Route: 048
  18. ZOCOR [Suspect]
     Active Substance: SIMVASTATIN
     Dosage: HALF TABLET DAILY EVENING
     Route: 048
  19. SYNTHROID [Concomitant]
     Active Substance: LEVOTHYROXINE SODIUM
     Dosage: 1.5 PILLS 1X DAILY MORNING
  20. VITAMIN E [Concomitant]
     Active Substance: .ALPHA.-TOCOPHEROL
     Dosage: 1 X DAILY MORNING
  21. AVALIDE [Concomitant]
     Active Substance: HYDROCHLOROTHIAZIDE\IRBESARTAN
     Dosage: 1 X DAILY MORNING
  22. ASCORBIC ACID. [Concomitant]
     Active Substance: ASCORBIC ACID
     Dosage: 1 X DAILY MORNING
  23. SOMA [Concomitant]
     Active Substance: CARISOPRODOL
     Dosage: 1 BED TIME AS NEEDED
  24. FLOVENT [Concomitant]
     Active Substance: FLUTICASONE PROPIONATE
     Dosage: 2 PUFFS 2X DAILY MORNING AND NIGHT
  25. ACIPHEX [Concomitant]
     Active Substance: RABEPRAZOLE SODIUM
     Dosage: 1X DAILY EVENING
  26. VOLTAREN [Concomitant]
     Active Substance: DICLOFENAC SODIUM
     Dosage: APPLY TO PAINFUL AREAS TWICE DILY

REACTIONS (23)
  - Cyst [Unknown]
  - Foot operation [Unknown]
  - Tendon operation [Unknown]
  - Cyst removal [Unknown]
  - Elbow operation [Unknown]
  - Shoulder operation [Unknown]
  - Tumour excision [Unknown]
  - Bone operation [Unknown]
  - Bone operation [Unknown]
  - Limb operation [Unknown]
  - Cholelithiasis [Unknown]
  - Ligament operation [Unknown]
  - Intervertebral disc protrusion [Unknown]
  - Shoulder operation [Unknown]
  - Limb operation [Unknown]
  - Intervertebral disc protrusion [Unknown]
  - Hand repair operation [Unknown]
  - Road traffic accident [Unknown]
  - Hysterectomy [Unknown]
  - Arthroscopy [Unknown]
  - Cyst [Unknown]
  - Neoplasm [Unknown]
  - Carpal tunnel syndrome [Unknown]

NARRATIVE: CASE EVENT DATE: 2000
